FAERS Safety Report 5467764-X (Version None)
Quarter: 2007Q3

REPORT INFORMATION
  Report Type: 
  Country: None (occurrence: None)
  Receive Date: 20070926
  Receipt Date: 20070920
  Transmission Date: 20080115
  Serious: Yes (Death, Hospitalization, Other)
  Sender: FDA-Public Use
  Company Number: PHBS2007CH15634

PATIENT
  Age: 40 Year
  Sex: Female

DRUGS (10)
  1. CYCLOSPORINE [Suspect]
     Indication: STEM CELL TRANSPLANT
     Route: 065
     Dates: start: 20020101
  2. DEFEROXAMINE MESYLATE [Suspect]
     Indication: HAEMOCHROMATOSIS
     Dosage: UNK, UNK
     Route: 065
     Dates: start: 20020101
  3. ATGAM [Suspect]
     Indication: STEM CELL TRANSPLANT
     Dosage: UNK, UNK
     Route: 065
     Dates: start: 20020101
  4. PREDNISONE [Suspect]
     Indication: APLASTIC ANAEMIA
     Dosage: UNK, UNK
     Route: 065
     Dates: start: 20020101
  5. CYCLOPHOSPHAMIDE [Concomitant]
     Indication: STEM CELL TRANSPLANT
     Dosage: UNK, UNK
     Route: 065
     Dates: start: 20030201
  6. IRRADIATION [Concomitant]
     Indication: STEM CELL TRANSPLANT
     Dates: start: 20030201
  7. MONOCLONAL ANTIBODIES [Concomitant]
     Indication: STEM CELL TRANSPLANT
  8. CO-TRIMOXAZOLE [Concomitant]
  9. FLUCONAZOLE [Concomitant]
  10. GANCICLOVIR [Concomitant]

REACTIONS (21)
  - ACUTE GRAFT VERSUS HOST DISEASE [None]
  - BLOOD CREATINE PHOSPHOKINASE INCREASED [None]
  - CATHETER RELATED INFECTION [None]
  - CONDUCTION DISORDER [None]
  - CONVULSION [None]
  - ELECTROCARDIOGRAM ST SEGMENT ELEVATION [None]
  - ELECTROMECHANICAL DISSOCIATION [None]
  - HYPERGLYCAEMIA [None]
  - MICROANGIOPATHIC HAEMOLYTIC ANAEMIA [None]
  - MYOCARDIAL INFARCTION [None]
  - MYOCARDITIS [None]
  - NUCLEAR MAGNETIC RESONANCE IMAGING BRAIN ABNORMAL [None]
  - PERICARDIAL EFFUSION [None]
  - PLEURAL EFFUSION [None]
  - PULMONARY NECROSIS [None]
  - STAPHYLOCOCCAL BACTERAEMIA [None]
  - SYSTEMIC MYCOSIS [None]
  - THROMBOSIS [None]
  - TROPONIN I INCREASED [None]
  - VENTRICULAR TACHYARRHYTHMIA [None]
  - ZYGOMYCOSIS [None]
